FAERS Safety Report 23474828 (Version 1)
Quarter: 2024Q1

REPORT INFORMATION
  Report Type: Spontaneous
  Country: JP (occurrence: JP)
  Receive Date: 20240204
  Receipt Date: 20240204
  Transmission Date: 20240410
  Serious: Yes (Other)
  Sender: FDA-Public Use
  Company Number: JP-TAKEDA-2023TJP011841

PATIENT
  Age: 6 Decade
  Sex: Male

DRUGS (4)
  1. CABOMETYX [Suspect]
     Active Substance: CABOZANTINIB S-MALATE
     Indication: Renal cell carcinoma
     Dosage: 20 MG, QD
     Route: 048
     Dates: start: 20230216
  2. CABOMETYX [Suspect]
     Active Substance: CABOZANTINIB S-MALATE
     Dosage: 40 MG, QD
     Route: 048
  3. CABOMETYX [Suspect]
     Active Substance: CABOZANTINIB S-MALATE
     Dosage: UNK, QOD
     Route: 048
  4. CABOMETYX [Suspect]
     Active Substance: CABOZANTINIB S-MALATE
     Dosage: 60 MG, QD
     Route: 048

REACTIONS (4)
  - Renal cell carcinoma [Not Recovered/Not Resolved]
  - Palmar-plantar erythrodysaesthesia syndrome [Recovering/Resolving]
  - Hypertension [Unknown]
  - Diarrhoea [Not Recovered/Not Resolved]

NARRATIVE: CASE EVENT DATE: 20230823
